FAERS Safety Report 25241056 (Version 2)
Quarter: 2025Q2

REPORT INFORMATION
  Report Type: Report from Study
  Country: CN (occurrence: CN)
  Receive Date: 20250425
  Receipt Date: 20250616
  Transmission Date: 20250716
  Serious: Yes (Hospitalization)
  Sender: BEIGENE
  Company Number: CN-JIANGSUAOSAIKANG-2025ASK001993

PATIENT
  Age: 66 Year
  Weight: 55 kg

DRUGS (40)
  1. TISLELIZUMAB [Suspect]
     Active Substance: TISLELIZUMAB
     Indication: Adenocarcinoma gastric
     Dosage: 200 MILLIGRAM, Q3WK
  2. TISLELIZUMAB [Suspect]
     Active Substance: TISLELIZUMAB
     Dosage: 200 MILLIGRAM, Q3WK
     Route: 041
  3. TISLELIZUMAB [Suspect]
     Active Substance: TISLELIZUMAB
     Dosage: 200 MILLIGRAM, Q3WK
     Route: 041
  4. TISLELIZUMAB [Suspect]
     Active Substance: TISLELIZUMAB
     Dosage: 200 MILLIGRAM, Q3WK
  5. INVESTIGATIONAL PRODUCT [Suspect]
     Active Substance: INVESTIGATIONAL PRODUCT
     Indication: Adenocarcinoma gastric
     Dosage: 6 MILLIGRAM/KILOGRAM, Q3WK
  6. INVESTIGATIONAL PRODUCT [Suspect]
     Active Substance: INVESTIGATIONAL PRODUCT
     Dosage: 6 MILLIGRAM/KILOGRAM, Q3WK
     Route: 041
  7. INVESTIGATIONAL PRODUCT [Suspect]
     Active Substance: INVESTIGATIONAL PRODUCT
     Dosage: 6 MILLIGRAM/KILOGRAM, Q3WK
     Route: 041
  8. INVESTIGATIONAL PRODUCT [Suspect]
     Active Substance: INVESTIGATIONAL PRODUCT
     Dosage: 6 MILLIGRAM/KILOGRAM, Q3WK
  9. OXALIPLATIN [Suspect]
     Active Substance: OXALIPLATIN
     Indication: Adenocarcinoma gastric
     Dosage: 130MG/M2,EVERY 3 WEEKS
  10. OXALIPLATIN [Suspect]
     Active Substance: OXALIPLATIN
     Dosage: 130MG/M2,EVERY 3 WEEKS
     Route: 041
  11. OXALIPLATIN [Suspect]
     Active Substance: OXALIPLATIN
     Dosage: 100MG/M2,EVERY 3 WEEKS
  12. OXALIPLATIN [Suspect]
     Active Substance: OXALIPLATIN
     Dosage: 100MG/M2,EVERY 3 WEEKS
     Route: 041
  13. CAPECITABINE [Suspect]
     Active Substance: CAPECITABINE
     Indication: Adenocarcinoma gastric
     Dosage: 1000 MG/M2, BID/D1-D14 PER CYCLE
  14. CAPECITABINE [Suspect]
     Active Substance: CAPECITABINE
     Dosage: 1000 MG/M2, BID/D1-D14 PER CYCLE
     Route: 048
  15. CAPECITABINE [Suspect]
     Active Substance: CAPECITABINE
     Dosage: 1000 MG/M2, BID/D1-D14 PER CYCLE
  16. CAPECITABINE [Suspect]
     Active Substance: CAPECITABINE
     Dosage: 1000 MG/M2, BID/D1-D14 PER CYCLE
     Route: 048
  17. CAPECITABINE [Suspect]
     Active Substance: CAPECITABINE
     Dosage: 1000 MG/M2, BID/D1-D14 PER CYCLE
     Route: 048
  18. CAPECITABINE [Suspect]
     Active Substance: CAPECITABINE
     Dosage: 1000 MG/M2, BID/D1-D14 PER CYCLE
  19. CAPECITABINE [Suspect]
     Active Substance: CAPECITABINE
     Dosage: 1000 MG/M2, BID/D1-D14 PER CYCLE
  20. CAPECITABINE [Suspect]
     Active Substance: CAPECITABINE
     Dosage: 1000 MG/M2, BID/D1-D14 PER CYCLE
     Route: 048
  21. CAPECITABINE [Suspect]
     Active Substance: CAPECITABINE
     Dosage: 1000 MG/M2, BID/D1-D14 PER CYCLE
     Route: 048
  22. CAPECITABINE [Suspect]
     Active Substance: CAPECITABINE
     Dosage: 1000 MG/M2, BID/D1-D14 PER CYCLE
  23. CAPECITABINE [Suspect]
     Active Substance: CAPECITABINE
     Dosage: 1000 MG/M2, BID/D1-D14 PER CYCLE
  24. CAPECITABINE [Suspect]
     Active Substance: CAPECITABINE
     Dosage: 1000 MG/M2, BID/D1-D14 PER CYCLE
     Route: 048
  25. CAPECITABINE [Suspect]
     Active Substance: CAPECITABINE
     Dosage: 1000 MG/M2, BID/D1-D14 PER CYCLE
  26. CAPECITABINE [Suspect]
     Active Substance: CAPECITABINE
     Dosage: 1000 MG/M2, BID/D1-D14 PER CYCLE
     Route: 048
  27. CAPECITABINE [Suspect]
     Active Substance: CAPECITABINE
     Dosage: 1000 MG/M2, BID/D1-D14 PER CYCLE
     Route: 048
  28. CAPECITABINE [Suspect]
     Active Substance: CAPECITABINE
     Dosage: 1000 MG/M2, BID/D1-D14 PER CYCLE
  29. CAPECITABINE [Suspect]
     Active Substance: CAPECITABINE
     Dosage: 1000 MG/M2, BID/D1-D14 PER CYCLE
     Route: 048
  30. CAPECITABINE [Suspect]
     Active Substance: CAPECITABINE
     Dosage: 1000 MG/M2, BID/D1-D14 PER CYCLE
  31. LEUCOGEN [Concomitant]
     Active Substance: LEUCOGEN
     Indication: Prophylaxis
  32. LEUCOGEN [Concomitant]
     Active Substance: LEUCOGEN
     Indication: Platelet count decreased
     Route: 048
  33. LEUCOGEN [Concomitant]
     Active Substance: LEUCOGEN
     Route: 048
  34. LEUCOGEN [Concomitant]
     Active Substance: LEUCOGEN
  35. Sheng xue xiao ban [Concomitant]
     Indication: Platelet count decreased
     Route: 048
  36. Sheng xue xiao ban [Concomitant]
  37. HERBALS [Concomitant]
     Active Substance: HERBALS
     Indication: Anaemia
     Dosage: 15 ML, TID
     Route: 048
  38. HERBALS [Concomitant]
     Active Substance: HERBALS
     Dosage: 15 ML, TID
  39. ESOMEPRAZOLE MAGNESIUM [Concomitant]
     Active Substance: ESOMEPRAZOLE MAGNESIUM
     Indication: Gastrointestinal disorder prophylaxis
     Route: 048
  40. ESOMEPRAZOLE MAGNESIUM [Concomitant]
     Active Substance: ESOMEPRAZOLE MAGNESIUM

REACTIONS (1)
  - Interstitial lung abnormality [Not Recovered/Not Resolved]
